FAERS Safety Report 11163964 (Version 3)
Quarter: 2015Q4

REPORT INFORMATION
  Report Type: Spontaneous
  Country: JP (occurrence: JP)
  Receive Date: 20150604
  Receipt Date: 20151028
  Transmission Date: 20160304
  Serious: Yes (Death, Hospitalization)
  Sender: FDA-Public Use
  Company Number: JP-TEVA-567269ISR

PATIENT
  Age: 64 Year
  Sex: Female
  Weight: 65 kg

DRUGS (11)
  1. E-FEN BUCCAL [Suspect]
     Active Substance: FENTANYL CITRATE
     Dosage: DAILY DOSE: 0 MICROGRAM
     Route: 002
     Dates: start: 20150122, end: 20150323
  2. LYRICA [Concomitant]
     Active Substance: PREGABALIN
     Indication: BACK PAIN
     Dosage: 75 MILLIGRAM DAILY;
     Route: 048
  3. METGLUCO [Concomitant]
     Active Substance: METFORMIN HYDROCHLORIDE
     Indication: DIABETES MELLITUS
     Dosage: 500 MILLIGRAM DAILY;
     Route: 048
  4. ACETAMINOPHEN. [Concomitant]
     Active Substance: ACETAMINOPHEN
     Indication: CANCER PAIN
     Route: 048
     Dates: start: 20150115
  5. FASLODEX [Concomitant]
     Active Substance: FULVESTRANT
     Indication: BREAST CANCER
     Dosage: 500 MILLIGRAM DAILY;
     Route: 030
  6. OXYCODONE HYDROCHLORIDE HYDRATE [Concomitant]
     Active Substance: OXYCODONE HYDROCHLORIDE
     Indication: CANCER PAIN
     Dosage: 10 MILLIGRAM DAILY;
     Route: 048
     Dates: start: 20150115, end: 20150123
  7. ZOLEDRONIC ACID HYDRATE [Concomitant]
     Active Substance: ZOLEDRONIC ACID
     Dosage: 4 MILLIGRAM DAILY;
     Route: 042
  8. EQUA [Concomitant]
     Active Substance: VILDAGLIPTIN
     Indication: DIABETES MELLITUS
     Dosage: 100 MILLIGRAM DAILY;
     Route: 048
  9. E-FEN BUCCAL [Suspect]
     Active Substance: FENTANYL CITRATE
     Indication: BREAKTHROUGH PAIN
     Dosage: DAILY DOSE: 50-150 MICROGRAM
     Route: 002
     Dates: start: 20150115, end: 20150121
  10. AMLODIPINE [Concomitant]
     Active Substance: AMLODIPINE BESYLATE
     Indication: HYPERTENSION
     Dosage: 7.5 MILLIGRAM DAILY;
     Route: 048
  11. OXYCODONE HYDROCHLORIDE HYDRATE [Concomitant]
     Active Substance: OXYCODONE HYDROCHLORIDE
     Dosage: 20 MILLIGRAM DAILY;
     Route: 048
     Dates: start: 20150124

REACTIONS (3)
  - Metastases to liver [Fatal]
  - Jaundice [Unknown]
  - Altered state of consciousness [Unknown]

NARRATIVE: CASE EVENT DATE: 20150323
